FAERS Safety Report 6042784-5 (Version None)
Quarter: 2009Q1

REPORT INFORMATION
  Report Type: 
  Country: None (occurrence: None)
  Receive Date: 20090119
  Receipt Date: 20081219
  Transmission Date: 20090719
  Serious: No
  Sender: FDA-Public Use
  Company Number: US-BAYER-200841467NA

PATIENT
  Age: 32 Year
  Sex: Female

DRUGS (1)
  1. YAZ [Suspect]
     Indication: AMENORRHOEA
     Route: 048
     Dates: start: 20080701, end: 20081201

REACTIONS (5)
  - BLOOD FOLLICLE STIMULATING HORMONE DECREASED [None]
  - LIBIDO DECREASED [None]
  - METRORRHAGIA [None]
  - NO ADVERSE EVENT [None]
  - OESTRADIOL DECREASED [None]
